FAERS Safety Report 13949093 (Version 2)
Quarter: 2017Q3

REPORT INFORMATION
  Report Type: Spontaneous
  Country: GB (occurrence: GB)
  Receive Date: 20170908
  Receipt Date: 20170922
  Transmission Date: 20171128
  Serious: Yes (Other)
  Sender: FDA-Public Use
  Company Number: GB-PFIZER INC-2017387716

PATIENT
  Age: 76 Year
  Sex: Female
  Weight: 75 kg

DRUGS (3)
  1. GAVISCON /00237601/ [Concomitant]
     Active Substance: ALUMINUM HYDROXIDE\MAGNESIUM CARBONATE
  2. IBUPROFEN. [Suspect]
     Active Substance: IBUPROFEN
     Indication: INFLAMMATION
     Dosage: 1 DF, 1X/DAY (TOPICAL TO LEG DAILY)
     Route: 061
     Dates: start: 20170816
  3. LEVOTHYROXINE SODIUM. [Concomitant]
     Active Substance: LEVOTHYROXINE SODIUM

REACTIONS (3)
  - Dyspnoea [Recovered/Resolved]
  - Pulse abnormal [Recovered/Resolved]
  - Heart rate irregular [Recovered/Resolved]

NARRATIVE: CASE EVENT DATE: 20170823
